FAERS Safety Report 8484531-3 (Version None)
Quarter: 2012Q3

REPORT INFORMATION
  Report Type: 
  Country: None (occurrence: None)
  Receive Date: 20120703
  Receipt Date: 20120622
  Transmission Date: 20120928
  Serious: Yes (Hospitalization)
  Sender: FDA-Public Use
  Company Number: FR-VERTEX PHARMACEUTICALS INC.-AE-2011-000750

PATIENT
  Sex: Female
  Weight: 83 kg

DRUGS (20)
  1. POTASSIUM CHLORIDE [Concomitant]
     Indication: PROPHYLAXIS
     Dates: start: 20110915
  2. AMOXICILLIN [Concomitant]
     Indication: ERYSIPELAS
  3. LASIX [Concomitant]
     Indication: OEDEMA
     Dates: start: 20110915
  4. LEVOTHYROXINE SODIUM [Concomitant]
     Indication: HYPOTHYROIDISM
     Route: 048
     Dates: start: 20010101
  5. DELURSAN [Concomitant]
     Indication: PROPHYLAXIS
     Route: 048
  6. VASTAREL [Concomitant]
     Indication: VERTIGO
     Route: 048
  7. NEORECORMON [Concomitant]
     Indication: ANAEMIA
     Route: 058
     Dates: start: 20110525
  8. COPEGUS [Concomitant]
     Indication: HEPATITIS C
     Route: 048
     Dates: start: 20110421
  9. IRBESARTAN AND HYDROCHLOROTHIAZIDE [Concomitant]
     Indication: HYPERTENSION
     Route: 048
  10. ALOPLASTINE [Concomitant]
     Indication: PRURITUS
     Dates: start: 20110530
  11. XYZAL [Concomitant]
     Indication: PRURITUS
     Dates: start: 20110622, end: 20110721
  12. DESLORATADINE [Concomitant]
     Indication: PRURITUS
     Dates: start: 20110721, end: 20110821
  13. ZOLPIDEM TARTRATE [Concomitant]
     Indication: INSOMNIA
     Dates: start: 20110818
  14. COPEGUS [Concomitant]
     Route: 048
     Dates: start: 20110523
  15. AMOXICILLIN [Concomitant]
     Indication: ERYSIPELAS
     Dates: start: 20110909
  16. ACETAMINOPHEN [Concomitant]
     Indication: INFLUENZA
     Dates: start: 20110421
  17. ARTISIAL [Concomitant]
     Indication: DRY MOUTH
     Dates: start: 20110606
  18. NEORECORMON [Concomitant]
     Dates: start: 20110701
  19. VX-950 [Suspect]
     Indication: HEPATITIS C
     Route: 048
     Dates: start: 20110523, end: 20110818
  20. PEGASYS [Concomitant]
     Indication: HEPATITIS C
     Route: 058
     Dates: start: 20110421

REACTIONS (3)
  - ANAEMIA [None]
  - PANNICULITIS [None]
  - POST THROMBOTIC SYNDROME [None]
